FAERS Safety Report 10742300 (Version 1)
Quarter: 2015Q1

REPORT INFORMATION
  Report Type: Spontaneous
  Country: US (occurrence: None)
  Receive Date: 20150123
  Receipt Date: 20150123
  Transmission Date: 20150721
  Serious: Yes (Other)
  Sender: FDA-Public Use
  Company Number: None

PATIENT
  Age: 57 Year
  Sex: Male
  Weight: 74.84 kg

DRUGS (1)
  1. CRESTOR [Suspect]
     Active Substance: ROSUVASTATIN CALCIUM
     Indication: BLOOD CHOLESTEROL INCREASED
     Route: 048
     Dates: start: 20140601, end: 20141231

REACTIONS (8)
  - Dyspepsia [None]
  - Flushing [None]
  - Hypertension [None]
  - Discomfort [None]
  - Visual impairment [None]
  - Arthralgia [None]
  - Gastric disorder [None]
  - Alopecia [None]

NARRATIVE: CASE EVENT DATE: 20140601
